FAERS Safety Report 4877999-2 (Version None)
Quarter: 2006Q1

REPORT INFORMATION
  Report Type: 
  Country: None (occurrence: None)
  Receive Date: 20060111
  Receipt Date: 20060102
  Transmission Date: 20060701
  Serious: Yes (Life-Threatening)
  Sender: FDA-Public Use
  Company Number: JP-BRISTOL-MYERS SQUIBB COMPANY-13240940

PATIENT
  Age: 52 Year
  Sex: Female

DRUGS (6)
  1. CYCLOPHOSPHAMIDE [Suspect]
     Indication: BREAST CANCER
     Route: 048
     Dates: start: 19980618, end: 19990421
  2. FARESTON [Suspect]
     Indication: BREAST CANCER
     Route: 048
     Dates: start: 19980821, end: 20020717
  3. FLUOROURACIL [Suspect]
     Indication: BREAST CANCER
     Dates: start: 19980618, end: 19990414
  4. EPIRUBICIN [Suspect]
     Indication: BREAST CANCER
     Dates: start: 19980618, end: 19990414
  5. GRANISETRON HCL [Concomitant]
     Dates: start: 19980618, end: 19990414
  6. TROPISETRON HCL [Concomitant]
     Dates: start: 19980618, end: 19990416

REACTIONS (2)
  - TREATMENT RELATED SECONDARY MALIGNANCY [None]
  - UTERINE CANCER [None]
